FAERS Safety Report 7825642-2 (Version None)
Quarter: 2011Q4

REPORT INFORMATION
  Report Type: 
  Country: None (occurrence: None)
  Receive Date: 20111019
  Receipt Date: 20111012
  Transmission Date: 20120403
  Serious: Yes (Hospitalization, Other)
  Sender: FDA-Public Use
  Company Number: JP-CEPHALON-2011002719

PATIENT
  Sex: Female
  Weight: 40 kg

DRUGS (13)
  1. BENDAMUSTINE HCL [Suspect]
     Route: 042
  2. FLUNITRAZEPAM [Concomitant]
     Dates: start: 20110228
  3. FAMOTIDINE [Concomitant]
  4. ISOSORBIDE DINITRATE [Concomitant]
  5. FLUCONAZOLE [Concomitant]
     Dates: start: 20110201
  6. GARENOXACIN MESYLATE [Concomitant]
     Dates: start: 20110201, end: 20110405
  7. RITUXIMAB [Suspect]
     Indication: MANTLE CELL LYMPHOMA
     Route: 042
     Dates: start: 20110302
  8. ETIZOLAM [Concomitant]
  9. MIANSERIN HYDROCHLORIDE [Concomitant]
  10. BENDAMUSTINE HCL [Suspect]
     Route: 042
     Dates: start: 20110228, end: 20110301
  11. BENDAMUSTINE HCL [Suspect]
     Route: 042
     Dates: start: 20110324, end: 20110325
  12. BENDAMUSTINE HCL [Suspect]
     Indication: MANTLE CELL LYMPHOMA
     Route: 042
     Dates: start: 20110201, end: 20110202
  13. PRIMIDONE [Concomitant]

REACTIONS (5)
  - HEPATITIS B [None]
  - DIARRHOEA [None]
  - PSEUDOMEMBRANOUS COLITIS [None]
  - LIVER DISORDER [None]
  - LYMPHOCYTE COUNT DECREASED [None]
